FAERS Safety Report 4602264-8 (Version None)
Quarter: 2005Q1

REPORT INFORMATION
  Report Type: 
  Country: None (occurrence: None)
  Receive Date: 20050215
  Receipt Date: 20041104
  Transmission Date: 20050727
  Serious: No
  Sender: FDA-Public Use
  Company Number: 380875

PATIENT
  Age: 55 Year
  Sex: Male
  Weight: 97.5 kg

DRUGS (4)
  1. PEGASYS [Suspect]
     Indication: HEPATITIS C VIRUS
     Dosage: 45 MCG SUBCUTANEOUS
     Route: 058
     Dates: start: 20040729
  2. COPEGUS [Suspect]
     Indication: HEPATITIS C VIRUS
     Dosage: ORAL
     Route: 048
     Dates: start: 20040729, end: 20040911
  3. CELLCEPT [Concomitant]
  4. PROGRAF [Concomitant]

REACTIONS (10)
  - BACK PAIN [None]
  - DYSPNOEA [None]
  - FATIGUE [None]
  - GINGIVAL PAIN [None]
  - GINGIVAL SWELLING [None]
  - GINGIVITIS [None]
  - HAEMOGLOBIN DECREASED [None]
  - PRURITUS [None]
  - RED BLOOD CELL COUNT DECREASED [None]
  - WHITE BLOOD CELL COUNT DECREASED [None]
